FAERS Safety Report 19549112 (Version 1)
Quarter: 2021Q3

REPORT INFORMATION
  Report Type: Spontaneous
  Country: IN (occurrence: IN)
  Receive Date: 20210714
  Receipt Date: 20210714
  Transmission Date: 20211014
  Serious: Yes (Hospitalization)
  Sender: FDA-Public Use
  Company Number: IN-MYLANLABS-2021M1042115

PATIENT
  Sex: Male

DRUGS (10)
  1. CLARITHROMYCIN. [Suspect]
     Active Substance: CLARITHROMYCIN
     Indication: HELICOBACTER INFECTION
     Dosage: AS A PART OF TRIPLE DRUG THERAPY COMPRISING PANTOPRAZOLE, AMOXICILLIN ..
     Route: 065
  2. BISMUTH SALICYLATE [Suspect]
     Active Substance: BISMUTH TRISALICYLATE
     Indication: HELICOBACTER INFECTION
     Dosage: AS A PART OF QUADRUPLE DRUG THERAPY COMPRISING BISMUTH SALICYLATE, METRONIDAZOLE, TETRACYCLINE ..
     Route: 065
  3. METRONIDAZOLE. [Suspect]
     Active Substance: METRONIDAZOLE
     Indication: HELICOBACTER INFECTION
     Dosage: AS A PART OF QUADRUPLE DRUG THERAPY COMPRISING BISMUTH SALICYLATE, METRONIDAZOLE, TETRACYCLINE ..
     Route: 065
  4. PANTOPRAZOLE [Suspect]
     Active Substance: PANTOPRAZOLE
     Dosage: AS A PART OF RESCUE THERAPY COMPRISING LEVOFLOXACIN, AMOXICILLIN..
     Route: 065
  5. AMOXICILLIN. [Suspect]
     Active Substance: AMOXICILLIN
     Indication: HELICOBACTER INFECTION
     Dosage: AS A PART OF TRIPLE DRUG THERAPY COMPRISING PANTOPRAZOLE, AMOXICILLIN ..
     Route: 065
  6. PANTOPRAZOLE [Suspect]
     Active Substance: PANTOPRAZOLE
     Indication: HELICOBACTER INFECTION
     Dosage: AS A PART OF TRIPLE DRUG THERAPY COMPRISING PANTOPRAZOLE, ..
     Route: 065
  7. PANTOPRAZOLE [Suspect]
     Active Substance: PANTOPRAZOLE
     Dosage: AS A PART OF QUADRUPLE DRUG THERAPY COMPRISING BISMUTH SALICYLATE, METRONIDAZOLE, ..
     Route: 065
  8. LEVOFLOXACIN. [Suspect]
     Active Substance: LEVOFLOXACIN
     Indication: HELICOBACTER INFECTION
     Dosage: AS A PART OF RESCUE THERAPY COMPRISING LEVOFLOXACIN, AMOXICILLIN ..
     Route: 065
  9. TETRACYCLINE [Suspect]
     Active Substance: TETRACYCLINE
     Indication: HELICOBACTER INFECTION
     Dosage: AS A PART OF QUADRUPLE DRUG THERAPY COMPRISING BISMUTH SALICYLATE, METRONIDAZOLE, TETRACYCLINE ..
     Route: 065
  10. AMOXICILLIN. [Suspect]
     Active Substance: AMOXICILLIN
     Dosage: AS A PART OF RESCUE THERAPY COMPRISING LEVOFLOXACIN, AMOXICILLIN..
     Route: 065

REACTIONS (1)
  - Drug ineffective [Unknown]
